FAERS Safety Report 7641141-5 (Version None)
Quarter: 2011Q3

REPORT INFORMATION
  Report Type: 
  Country: None (occurrence: None)
  Receive Date: 20110728
  Receipt Date: 20110713
  Transmission Date: 20111222
  Serious: Yes (Other)
  Sender: FDA-Public Use
  Company Number: PHHY2011US63321

PATIENT
  Sex: Female

DRUGS (14)
  1. DIOVAN [Suspect]
     Dosage: 160 MG, BID
  2. LAMICTAL [Concomitant]
     Indication: CONVULSION
  3. XOPENEX [Concomitant]
  4. ASPIRIN [Concomitant]
  5. VITAMIN D [Concomitant]
  6. SINGULAIR [Concomitant]
     Indication: ASTHMA
  7. NEBULIZER [Concomitant]
  8. VERAPAMIL [Concomitant]
     Indication: HYPERTENSION
  9. POTASSIUM [Concomitant]
     Dosage: 20 MEQ, UNK
  10. FUROSEMIDE [Concomitant]
     Indication: HYPERTENSION
  11. PROTONIX [Concomitant]
  12. OTHER VITAMIN PRODUCTS, COMBINATIONS [Concomitant]
  13. LOVAZA [Concomitant]
  14. DULERA ORAL INHALATION [Concomitant]

REACTIONS (3)
  - PULMONARY HYPERTENSION [None]
  - LUNG DISORDER [None]
  - EPILEPSY [None]
